FAERS Safety Report 12897512 (Version 1)
Quarter: 2016Q4

REPORT INFORMATION
  Report Type: Report from Study
  Country: US (occurrence: US)
  Receive Date: 20161031
  Receipt Date: 20161031
  Transmission Date: 20170207
  Serious: Yes (Death, Hospitalization, Other)
  Sender: FDA-Public Use
  Company Number: US-009507513-1609USA009765

PATIENT
  Age: 62 Year
  Sex: Male

DRUGS (1)
  1. KEYTRUDA [Suspect]
     Active Substance: PEMBROLIZUMAB
     Indication: GASTRIC CANCER
     Dosage: UNK
     Route: 042
     Dates: start: 201605, end: 201607

REACTIONS (5)
  - Adverse event [Unknown]
  - Death [Fatal]
  - Dehydration [Unknown]
  - Product use issue [Unknown]
  - Mental disorder [Unknown]

NARRATIVE: CASE EVENT DATE: 2016
